FAERS Safety Report 9920120 (Version 2)
Quarter: 2014Q1

REPORT INFORMATION
  Report Type: Spontaneous
  Country: FR (occurrence: FR)
  Receive Date: 20140224
  Receipt Date: 20140314
  Transmission Date: 20141002
  Serious: Yes (Hospitalization, Other)
  Sender: FDA-Public Use
  Company Number: FR-B.I. PHARMACEUTICALS,INC./RIDGEFIELD-2014-BI-08160GD

PATIENT
  Age: 2 Day
  Sex: Male
  Weight: 3.06 kg

DRUGS (2)
  1. CATAPRESSAN [Suspect]
     Indication: EXPOSURE DURING PREGNANCY
     Route: 064
  2. CATAPRESSAN [Suspect]
     Route: 063

REACTIONS (8)
  - Convulsion [Recovered/Resolved]
  - Apnoea [Recovered/Resolved]
  - Toxicity to various agents [Recovered/Resolved]
  - Depressed level of consciousness [Recovered/Resolved]
  - Somnolence [Recovered/Resolved]
  - Hypotonia [Recovered/Resolved]
  - Cyanosis [Recovered/Resolved]
  - Hypoglycaemia [Recovered/Resolved]
